FAERS Safety Report 8586027-7 (Version None)
Quarter: 2012Q3

REPORT INFORMATION
  Report Type: 
  Country: None (occurrence: None)
  Receive Date: 20120810
  Receipt Date: 20120802
  Transmission Date: 20120928
  Serious: Yes (Death, Hospitalization)
  Sender: FDA-Public Use
  Company Number: US-MILLENNIUM PHARMACEUTICALS, INC.-2012-04178

PATIENT
  Sex: Female
  Weight: 62 kg

DRUGS (2)
  1. VELCADE [Suspect]
     Indication: ACUTE MYELOID LEUKAEMIA
     Dosage: 1.3 MG/M2, CYCLIC
     Route: 058
     Dates: start: 20120227, end: 20120506
  2. DECITABINE [Suspect]
     Indication: ACUTE MYELOID LEUKAEMIA
     Dosage: 20 MG/M2, CYCLIC
     Route: 042
     Dates: start: 20120227, end: 20120506

REACTIONS (13)
  - NEUTROPHIL COUNT DECREASED [None]
  - BLOOD ALKALINE PHOSPHATASE INCREASED [None]
  - HYPOTENSION [None]
  - MUSCULAR WEAKNESS [None]
  - FEBRILE NEUTROPENIA [None]
  - DYSPNOEA [None]
  - RENAL FAILURE ACUTE [None]
  - HYPOXIA [None]
  - HYPOKALAEMIA [None]
  - PULMONARY OEDEMA [None]
  - PNEUMONIA FUNGAL [None]
  - DEHYDRATION [None]
  - HYPOALBUMINAEMIA [None]
